FAERS Safety Report 17861035 (Version 1)
Quarter: 2020Q2

REPORT INFORMATION
  Report Type: Report from Study
  Country: IT (occurrence: IT)
  Receive Date: 20200604
  Receipt Date: 20200604
  Transmission Date: 20200714
  Serious: Yes (Hospitalization)
  Sender: FDA-Public Use
  Company Number: IT-MYLANLABS-2020M1053866

PATIENT
  Age: 84 Year
  Sex: Male

DRUGS (4)
  1. ACETYLSALICYLIC ACID [Suspect]
     Active Substance: ASPIRIN
     Indication: ISCHAEMIC HEART DISEASE PROPHYLAXIS
     Dosage: 100 MILLIGRAM, QD
     Route: 048
     Dates: start: 20200101, end: 20200413
  2. PANTORC [Concomitant]
     Active Substance: PANTOPRAZOLE SODIUM
     Route: 048
  3. CLOPIDOGREL [Suspect]
     Active Substance: CLOPIDOGREL BISULFATE
     Indication: ISCHAEMIC HEART DISEASE PROPHYLAXIS
     Dosage: 75 MILLIGRAM, QD
     Route: 048
     Dates: start: 20200101, end: 20200413
  4. TAREG [Concomitant]
     Active Substance: VALSARTAN
     Route: 048

REACTIONS (2)
  - Presyncope [Unknown]
  - Intestinal haemorrhage [Unknown]

NARRATIVE: CASE EVENT DATE: 20200413
